FAERS Safety Report 13579146 (Version 1)
Quarter: 2017Q2

REPORT INFORMATION
  Report Type: Spontaneous
  Country: US (occurrence: US)
  Receive Date: 20170525
  Receipt Date: 20170525
  Transmission Date: 20170830
  Serious: No
  Sender: FDA-Public Use
  Company Number: US-TARO-2017TAR00136

PATIENT
  Sex: Female

DRUGS (1)
  1. AMMONIUM LACTATE 12% [Suspect]
     Active Substance: AMMONIUM LACTATE
     Route: 061

REACTIONS (2)
  - Rash [Not Recovered/Not Resolved]
  - Skin discolouration [Not Recovered/Not Resolved]
